FAERS Safety Report 19030518 (Version 1)
Quarter: 2021Q1

REPORT INFORMATION
  Report Type: Spontaneous
  Country: US (occurrence: US)
  Receive Date: 20210319
  Receipt Date: 20210319
  Transmission Date: 20210420
  Serious: No
  Sender: FDA-Public Use
  Company Number: US-EIGER BIOPHARMACEUTICALS-EIG-2021-000001

PATIENT
  Age: 11 Year
  Sex: Male

DRUGS (1)
  1. ZOKINVY [Suspect]
     Active Substance: LONAFARNIB
     Indication: PROGERIA
     Dosage: 2 DF (CAPSULES), BID
     Route: 048
     Dates: start: 2020, end: 20210131

REACTIONS (1)
  - Product dose omission issue [Unknown]

NARRATIVE: CASE EVENT DATE: 20210201
